FAERS Safety Report 18814446 (Version 3)
Quarter: 2025Q2

REPORT INFORMATION
  Report Type: Spontaneous
  Country: IT (occurrence: IT)
  Receive Date: 20210201
  Receipt Date: 20250623
  Transmission Date: 20250717
  Serious: Yes (Death, Hospitalization, Other)
  Sender: AUROBINDO
  Company Number: IT-BEH-2021127226

PATIENT
  Age: 51 Year
  Sex: Male

DRUGS (13)
  1. AZITHROMYCIN [Suspect]
     Active Substance: AZITHROMYCIN
     Indication: COVID-19
     Route: 065
  2. AZITHROMYCIN [Suspect]
     Active Substance: AZITHROMYCIN
     Indication: Off label use
  3. LEVOFLOXACIN [Suspect]
     Active Substance: LEVOFLOXACIN
     Indication: Antibiotic therapy
     Route: 065
  4. LINEZOLID [Suspect]
     Active Substance: LINEZOLID
     Indication: Antibiotic therapy
     Route: 065
  5. PIPERACILLIN AND TAZOBACTAM [Suspect]
     Active Substance: PIPERACILLIN SODIUM\TAZOBACTAM SODIUM
     Indication: Antibiotic therapy
     Route: 065
  6. DEXAMETHASONE [Suspect]
     Active Substance: DEXAMETHASONE
     Indication: COVID-19
     Route: 042
  7. HUMAN IMMUNOGLOBULIN G [Suspect]
     Active Substance: HUMAN IMMUNOGLOBULIN G
     Indication: COVID-19
     Route: 042
  8. OXYGEN [Suspect]
     Active Substance: OXYGEN
     Indication: Hypercapnia
     Route: 065
  9. OXYGEN [Suspect]
     Active Substance: OXYGEN
     Indication: Hypoxia
  10. PREDNISOLONE [Suspect]
     Active Substance: PREDNISOLONE
     Indication: COVID-19
     Route: 065
  11. ENOXAPARIN [Suspect]
     Active Substance: ENOXAPARIN
     Indication: COVID-19
     Dosage: 6000 INTERNATIONAL UNIT, ONCE A DAY
     Route: 065
  12. HUMAN IMMUNOGLOBULIN G [Concomitant]
     Active Substance: HUMAN IMMUNOGLOBULIN G
     Indication: Good syndrome
     Route: 058
  13. DEXAMETHASONE [Concomitant]
     Active Substance: DEXAMETHASONE
     Indication: Good syndrome
     Route: 065

REACTIONS (9)
  - COVID-19 [Fatal]
  - Drug ineffective for unapproved indication [Fatal]
  - Off label use [Fatal]
  - Dyspnoea [Fatal]
  - Hypoxia [Fatal]
  - Hypocapnia [Fatal]
  - Respiratory alkalosis [Fatal]
  - Product use issue [Unknown]
  - Product use in unapproved indication [Unknown]
